FAERS Safety Report 22207668 (Version 1)
Quarter: 2023Q2

REPORT INFORMATION
  Report Type: Spontaneous
  Country: US (occurrence: US)
  Receive Date: 20230413
  Receipt Date: 20230413
  Transmission Date: 20230721
  Serious: No
  Sender: FDA-Public Use
  Company Number: US-BAYER-2023A044827

PATIENT
  Sex: Female

DRUGS (4)
  1. KYLEENA [Suspect]
     Active Substance: LEVONORGESTREL
     Indication: Contraception
     Dosage: 17.5?G/DAY
     Route: 015
  2. KYLEENA [Suspect]
     Active Substance: LEVONORGESTREL
     Indication: Heavy menstrual bleeding
  3. KYLEENA [Suspect]
     Active Substance: LEVONORGESTREL
     Indication: Polymenorrhoea
  4. INGREZZA [Concomitant]
     Active Substance: VALBENAZINE
     Indication: Dyskinesia

REACTIONS (1)
  - Vomiting [None]
